FAERS Safety Report 14478019 (Version 1)
Quarter: 2018Q1

REPORT INFORMATION
  Report Type: Spontaneous
  Country: US (occurrence: US)
  Receive Date: 20180201
  Receipt Date: 20180201
  Transmission Date: 20180509
  Serious: Yes (Other)
  Sender: FDA-Public Use
  Company Number: US-BEH-2018087256

PATIENT
  Sex: Male
  Weight: 71.66 kg

DRUGS (20)
  1. CLONIDINE. [Concomitant]
     Active Substance: CLONIDINE
  2. CALCIUM [Concomitant]
     Active Substance: CALCIUM
  3. POTASSIUM CHLORIDE. [Concomitant]
     Active Substance: POTASSIUM CHLORIDE
  4. MELATONIN [Concomitant]
     Active Substance: MELATONIN
  5. LIPOFLAVONOID                      /00457001/ [Concomitant]
  6. ZEMAIRA [Suspect]
     Active Substance: .ALPHA.1-PROTEINASE INHIBITOR HUMAN
     Indication: EMPHYSEMA
     Dosage: 60 MG/KG, QW
     Route: 042
     Dates: start: 20080819
  7. MULTIVITAMIN                       /00097801/ [Concomitant]
     Active Substance: VITAMINS
  8. LASIX [Concomitant]
     Active Substance: FUROSEMIDE
  9. FISH OIL [Concomitant]
     Active Substance: FISH OIL
  10. ZEMAIRA [Suspect]
     Active Substance: .ALPHA.1-PROTEINASE INHIBITOR HUMAN
     Indication: ALPHA-1 ANTI-TRYPSIN DEFICIENCY
     Dosage: UNK
     Route: 042
  11. LIPITOR [Concomitant]
     Active Substance: ATORVASTATIN CALCIUM
  12. PROAIR HFA [Concomitant]
     Active Substance: ALBUTEROL SULFATE
  13. PILOCARPINE. [Concomitant]
     Active Substance: PILOCARPINE
  14. ZOLPIDEM [Concomitant]
     Active Substance: ZOLPIDEM\ZOLPIDEM TARTRATE
  15. ATENOLOL. [Concomitant]
     Active Substance: ATENOLOL
  16. SYMBICORT [Concomitant]
     Active Substance: BUDESONIDE\FORMOTEROL FUMARATE DIHYDRATE
  17. JANUMET [Concomitant]
     Active Substance: METFORMIN HYDROCHLORIDE\SITAGLIPTIN PHOSPHATE
  18. OXYGEN. [Concomitant]
     Active Substance: OXYGEN
  19. COENZYME Q10 [Concomitant]
     Active Substance: UBIDECARENONE
  20. PENICILLIN                         /00000901/ [Concomitant]
     Active Substance: PENICILLIN G

REACTIONS (4)
  - Influenza [Unknown]
  - Dehydration [Unknown]
  - Nephrolithiasis [Unknown]
  - Haematuria [Unknown]
